FAERS Safety Report 21021430 (Version 1)
Quarter: 2022Q2

REPORT INFORMATION
  Report Type: Spontaneous
  Country: DE (occurrence: DE)
  Receive Date: 20220629
  Receipt Date: 20220629
  Transmission Date: 20220721
  Serious: Yes (Other)
  Sender: FDA-Public Use
  Company Number: DE-AMGEN-DEUSP2022107062

PATIENT
  Age: 30 Year
  Sex: Male
  Weight: 67 kg

DRUGS (6)
  1. FILGRASTIM [Suspect]
     Active Substance: FILGRASTIM
     Indication: Product used for unknown indication
     Dosage: 30 MICRO INTERNATIONAL UNIT
     Route: 058
  2. TRASTUZUMAB [Concomitant]
     Active Substance: TRASTUZUMAB
     Dosage: 4 MILLIGRAM/KILOGRAM
  3. FLUOROURACIL [Concomitant]
     Active Substance: FLUOROURACIL
     Dosage: 2400 MILLIGRAM/SQ. METER
  4. LEUCOVORIN [Concomitant]
     Active Substance: LEUCOVORIN
     Dosage: 200 MILLIGRAM/SQ. METER
  5. OXALIPLATIN [Concomitant]
     Active Substance: OXALIPLATIN
     Dosage: 85 MILLIGRAM/SQ. METER
  6. DOCETAXEL [Concomitant]
     Active Substance: DOCETAXEL
     Dosage: 50 MILLIGRAM PER MILLILITRE, QWK

REACTIONS (4)
  - Portal vein thrombosis [Unknown]
  - Alopecia totalis [Unknown]
  - Onychoclasis [Unknown]
  - Procedural complication [Unknown]
